FAERS Safety Report 14121128 (Version 3)
Quarter: 2020Q3

REPORT INFORMATION
  Report Type: Spontaneous
  Country: US (occurrence: US)
  Receive Date: 20171024
  Receipt Date: 20200827
  Transmission Date: 20201102
  Serious: No
  Sender: FDA-Public Use
  Company Number: US-SA-2017SA157923

PATIENT

DRUGS (3)
  1. LUMIZYME [Suspect]
     Active Substance: ALGLUCOSIDASE ALFA
     Indication: GLYCOGEN STORAGE DISEASE TYPE II
     Dosage: 800 MG, QOW
     Route: 041
  2. LUMIZYME [Suspect]
     Active Substance: ALGLUCOSIDASE ALFA
     Dosage: 750 MG, QOW
     Route: 041
     Dates: start: 20200408
  3. LUMIZYME [Suspect]
     Active Substance: ALGLUCOSIDASE ALFA
     Dosage: 800 MG, QW
     Route: 041
     Dates: start: 202007

REACTIONS (3)
  - Off label use [Unknown]
  - Poor venous access [Unknown]
  - Illness [Unknown]

NARRATIVE: CASE EVENT DATE: 20170822
